FAERS Safety Report 23667140 (Version 1)
Quarter: 2024Q1

REPORT INFORMATION
  Report Type: Other
  Country: US (occurrence: None)
  Receive Date: 20240325
  Receipt Date: 20240325
  Transmission Date: 20240409
  Serious: Yes (Death)
  Sender: FDA-Public Use
  Company Number: US-ROCHE-2782472

PATIENT
  Age: 87 Year
  Sex: Female

DRUGS (2)
  1. CELLCEPT [Suspect]
     Active Substance: MYCOPHENOLATE MOFETIL
     Indication: Myasthenia gravis
     Dosage: 500 MG 2 TABLET IN AM, 1 TAB IN PM
     Route: 048
  2. CELLCEPT [Suspect]
     Active Substance: MYCOPHENOLATE MOFETIL
     Route: 065

REACTIONS (4)
  - Off label use [Unknown]
  - Product prescribing error [Unknown]
  - Circumstance or information capable of leading to medication error [Unknown]
  - Death [Fatal]

NARRATIVE: CASE EVENT DATE: 20240216
